FAERS Safety Report 7019132-7 (Version None)
Quarter: 2010Q3

REPORT INFORMATION
  Report Type: 
  Country: None (occurrence: None)
  Receive Date: 20100928
  Receipt Date: 20100921
  Transmission Date: 20110219
  Serious: Yes (Hospitalization)
  Sender: FDA-Public Use
  Company Number: B0676423A

PATIENT
  Sex: Female
  Weight: 44 kg

DRUGS (8)
  1. LAPATINIB [Suspect]
     Indication: BREAST CANCER
     Dosage: 750MG PER DAY
     Route: 048
     Dates: start: 20100913, end: 20100915
  2. AMLODIPINE [Concomitant]
     Indication: HYPERTENSION
     Dosage: 5MG PER DAY
     Route: 048
     Dates: start: 20100205
  3. ACETYLCYSTEINE [Concomitant]
     Dosage: 300MG PER DAY
     Route: 048
     Dates: start: 20100826
  4. NAVELBINE [Concomitant]
     Dosage: 80MG PER DAY
     Route: 048
     Dates: start: 20100913, end: 20100913
  5. CALPEROS [Concomitant]
     Indication: OSTEOPOROSIS
     Dosage: 4TAB PER DAY
     Route: 048
     Dates: start: 20090820
  6. FAMOTIDINE [Concomitant]
     Dates: start: 20090217
  7. LISINOPRIL [Concomitant]
     Indication: HYPERTENSION
     Dates: start: 20090828
  8. HYPROMELLOSE [Concomitant]
     Indication: OCULAR DISCOMFORT
     Dates: start: 20090913, end: 20090915

REACTIONS (6)
  - CHILLS [None]
  - COUGH [None]
  - PRODUCTIVE COUGH [None]
  - PYREXIA [None]
  - RHINITIS [None]
  - UPPER RESPIRATORY TRACT INFECTION [None]
